FAERS Safety Report 23581139 (Version 1)
Quarter: 2024Q1

REPORT INFORMATION
  Report Type: Report from Study
  Country: CA (occurrence: CA)
  Receive Date: 20240229
  Receipt Date: 20240229
  Transmission Date: 20240410
  Serious: Yes (Other)
  Sender: FDA-Public Use
  Company Number: CA-Amarin Pharma  Inc-2024AMR000076

PATIENT
  Age: 74 Year
  Sex: Male

DRUGS (2)
  1. VASCEPA [Suspect]
     Active Substance: ICOSAPENT ETHYL
     Indication: Cardiovascular event prophylaxis
     Route: 048
  2. VASCEPA [Suspect]
     Active Substance: ICOSAPENT ETHYL
     Indication: Cardiac disorder

REACTIONS (1)
  - Crohn^s disease [Unknown]

NARRATIVE: CASE EVENT DATE: 20230101
